FAERS Safety Report 6816722-9 (Version None)
Quarter: 2010Q3

REPORT INFORMATION
  Report Type: 
  Country: None (occurrence: None)
  Receive Date: 20100706
  Receipt Date: 20100622
  Transmission Date: 20110219
  Serious: Yes (Other)
  Sender: FDA-Public Use
  Company Number: PHHY2010GB25775

PATIENT

DRUGS (2)
  1. ALISKIREN [Suspect]
     Dosage: 300MG
  2. ALB2 [Suspect]

REACTIONS (1)
  - GLOMERULAR FILTRATION RATE DECREASED [None]
